FAERS Safety Report 13123140 (Version 7)
Quarter: 2018Q1

REPORT INFORMATION
  Report Type: Report from Study
  Country: US (occurrence: US)
  Receive Date: 20170117
  Receipt Date: 20180309
  Transmission Date: 20180508
  Serious: Yes (Hospitalization, Other)
  Sender: FDA-Public Use
  Company Number: US-ARIAD-2015US005299

PATIENT
  Sex: Male
  Weight: 69 kg

DRUGS (7)
  1. PONATINIB [Suspect]
     Active Substance: PONATINIB
     Indication: GASTROINTESTINAL STROMAL TUMOUR
     Dosage: 30 MG, QD
     Route: 048
     Dates: start: 20150715
  2. PONATINIB [Suspect]
     Active Substance: PONATINIB
     Indication: NEOPLASM MALIGNANT
     Dosage: 30 MG, QD
     Route: 048
  3. PONATINIB [Suspect]
     Active Substance: PONATINIB
     Dosage: 30 MG, QD
     Route: 048
  4. PONATINIB [Suspect]
     Active Substance: PONATINIB
     Dosage: 30 MG, QD
     Route: 048
  5. PONATINIB [Suspect]
     Active Substance: PONATINIB
     Dosage: 30 MG, QD
     Route: 048
  6. PONATINIB [Suspect]
     Active Substance: PONATINIB
     Dosage: 30 MG, QD
     Route: 048
     Dates: start: 201801
  7. PONATINIB [Suspect]
     Active Substance: PONATINIB
     Dosage: 30 MG, QD
     Route: 048

REACTIONS (15)
  - Dry skin [Unknown]
  - Skin exfoliation [Not Recovered/Not Resolved]
  - Clostridium difficile infection [Unknown]
  - Intestinal obstruction [Unknown]
  - Abscess [Unknown]
  - Rash [Not Recovered/Not Resolved]
  - Pulmonary embolism [Recovered/Resolved]
  - Tumour pain [Not Recovered/Not Resolved]
  - Chest discomfort [Unknown]
  - Abdominal pain upper [Not Recovered/Not Resolved]
  - Neuropathy peripheral [Unknown]
  - Escherichia infection [Unknown]
  - Off label use [Unknown]
  - Blister [Unknown]
  - Dry mouth [Not Recovered/Not Resolved]
